FAERS Safety Report 5615130-6 (Version None)
Quarter: 2008Q1

REPORT INFORMATION
  Report Type: 
  Country: None (occurrence: None)
  Receive Date: 20080131
  Receipt Date: 20080115
  Transmission Date: 20080703
  Serious: Yes (Hospitalization)
  Sender: FDA-Public Use
  Company Number: 2007JP004688

PATIENT
  Age: 73 Year
  Sex: Male
  Weight: 68.3 kg

DRUGS (12)
  1. VESICARE [Suspect]
     Indication: HYPERTONIC BLADDER
     Dosage: 5 MG, UID/QD, ORAL
     Route: 048
     Dates: start: 20061011, end: 20071002
  2. DAZEN (SERRAPEPTASE) TABLET [Suspect]
     Indication: BRONCHITIS
     Dosage: 2 DF, TID, ORAL
     Route: 048
     Dates: start: 20061025, end: 20070926
  3. PREDNISOLONE [Concomitant]
  4. BAKTAR         (SULFAMETHOXAZOLE, TRIMETHOPRIM) [Concomitant]
  5. OMEPRAL PER ORAL NOS [Concomitant]
  6. PARIET                (RABEPRAZOLE SODIUM) TABLET [Concomitant]
  7. MEDICON           (DEXTROMETHORPHAN HYDROBROMIDE) [Concomitant]
  8. MUCOSOLVAN         (AMBROXOL HYDROCHLORIDE) [Concomitant]
  9. MUCODYNE            (CARBOCISTEINE) [Concomitant]
  10. ERYTHROCIN          (ERYTHROMYCIN STEARATE) [Concomitant]
  11. FLUTIDE                 (FLUTICASONE PROPIONATE) INHALATION [Concomitant]
  12. CODEINE PHOSPHATE POWDER [Concomitant]

REACTIONS (8)
  - ALVEOLITIS ALLERGIC [None]
  - BRONCHIAL HYPERREACTIVITY [None]
  - BRONCHITIS [None]
  - COUGH [None]
  - HAEMOPTYSIS [None]
  - LUNG DISORDER [None]
  - MALAISE [None]
  - PO2 DECREASED [None]
